FAERS Safety Report 8805472 (Version 2)
Quarter: 2015Q2

REPORT INFORMATION
  Report Type: Report from Study
  Country: US (occurrence: US)
  Receive Date: 20120924
  Receipt Date: 20150630
  Transmission Date: 20150821
  Serious: Yes (Death)
  Sender: FDA-Public Use
  Company Number: US-ROCHE-1123706

PATIENT
  Sex: Female

DRUGS (12)
  1. TYLENOL [Concomitant]
     Active Substance: ACETAMINOPHEN
  2. NEUPOGEN [Concomitant]
     Active Substance: FILGRASTIM
     Route: 065
  3. PROCRIT [Concomitant]
     Active Substance: ERYTHROPOIETIN
     Route: 065
  4. TEQUIN [Concomitant]
     Active Substance: GATIFLOXACIN
  5. ZOMETA [Concomitant]
     Active Substance: ZOLEDRONIC ACID
     Route: 065
  6. BENADRYL [Concomitant]
     Active Substance: DIPHENHYDRAMINE HYDROCHLORIDE
     Route: 042
  7. DECADRON [Concomitant]
     Active Substance: DEXAMETHASONE
  8. TEMODAR [Concomitant]
     Active Substance: TEMOZOLOMIDE
  9. HERCEPTIN [Suspect]
     Active Substance: TRASTUZUMAB
     Indication: LUNG NEOPLASM MALIGNANT
     Dosage: MAINTAINANCE DOSE
     Route: 042
  10. TARCEVA [Suspect]
     Active Substance: ERLOTINIB HYDROCHLORIDE
     Indication: PRODUCT USED FOR UNKNOWN INDICATION
     Route: 048
  11. HERCEPTIN [Suspect]
     Active Substance: TRASTUZUMAB
     Indication: TRACHEAL CANCER
     Dosage: LOADING DOSE
     Route: 042
     Dates: start: 20050421
  12. HERCEPTIN [Suspect]
     Active Substance: TRASTUZUMAB
     Indication: BRONCHIAL CARCINOMA
     Route: 042

REACTIONS (18)
  - Diarrhoea [Unknown]
  - Pain [Unknown]
  - Nausea [Unknown]
  - Gait disturbance [Unknown]
  - Motor dysfunction [Unknown]
  - Bone pain [Unknown]
  - Off label use [Unknown]
  - Constipation [Unknown]
  - Death [Fatal]
  - Sleep disorder [Unknown]
  - Dysarthria [Unknown]
  - Hypoaesthesia [Unknown]
  - Appetite disorder [Unknown]
  - Epistaxis [Unknown]
  - Vomiting [Unknown]
  - Arthralgia [Unknown]
  - Jaundice [Unknown]
  - Decreased activity [Unknown]
